FAERS Safety Report 9134030 (Version 1)
Quarter: 2013Q1

REPORT INFORMATION
  Report Type: Spontaneous
  Country: US (occurrence: None)
  Receive Date: 20130226
  Receipt Date: 20130226
  Transmission Date: 20140127
  Serious: Yes (Death, Hospitalization)
  Sender: FDA-Public Use
  Company Number: None

PATIENT
  Sex: Male
  Weight: 88 kg

DRUGS (6)
  1. CYTARABINE [Suspect]
     Route: 037
     Dates: end: 20130120
  2. DAUNORUBICIN [Suspect]
     Dates: end: 20130211
  3. METHOTREXATE [Suspect]
     Route: 037
     Dates: end: 20130128
  4. ONCASPAR [Suspect]
     Dates: end: 20130123
  5. PREDNISONE [Suspect]
     Dates: end: 20130206
  6. VINCRISTINE SULFATE [Suspect]
     Dates: end: 20130211

REACTIONS (12)
  - Fall [None]
  - Head injury [None]
  - Headache [None]
  - Contusion [None]
  - Haematoma [None]
  - Cyanosis [None]
  - Platelet count decreased [None]
  - Haemoglobin decreased [None]
  - Hypotension [None]
  - Pulse absent [None]
  - Apnoea [None]
  - Cardio-respiratory arrest [None]
